FAERS Safety Report 6382866-1 (Version None)
Quarter: 2009Q3

REPORT INFORMATION
  Report Type: 
  Country: None (occurrence: None)
  Receive Date: 20090930
  Receipt Date: 20090917
  Transmission Date: 20100115
  Serious: Yes (Other)
  Sender: FDA-Public Use
  Company Number: US-PFIZER INC-2009271318

PATIENT
  Sex: Male

DRUGS (2)
  1. ZOLOFT [Suspect]
  2. XANAX [Suspect]

REACTIONS (1)
  - HOMICIDAL IDEATION [None]
